FAERS Safety Report 9508437 (Version 4)
Quarter: 2014Q2

REPORT INFORMATION
  Report Type: Spontaneous
  Country: IT (occurrence: None)
  Receive Date: 20130905
  Receipt Date: 20140523
  Transmission Date: 20141212
  Serious: Yes (Life-Threatening, Hospitalization, Other)
  Sender: FDA-Public Use
  Company Number: AUR-APL-2013-07227

PATIENT
  Age: 63 Year
  Sex: Male
  Weight: 68 kg

DRUGS (5)
  1. METFORMIN (METFORMIN) [Suspect]
     Indication: TYPE 2 DIABETES MELLITUS
     Dosage: (1500 MG,1 D)
     Route: 048
     Dates: start: 20120101, end: 20121218
  2. GLIBENCLAMIDE\METFORMIN [Suspect]
     Indication: TYPE 2 DIABETES MELLITUS
     Dosage: (1515 MG,1 D)
     Route: 048
     Dates: start: 20120101, end: 20121218
  3. MICARDIS(TELMISARTAN) [Concomitant]
  4. CLEXANE(ENOXAPARIN SODIUM) [Concomitant]
  5. ATORVASTATIN CALCIUM TRIHYDRATE(ATORVASTATIN CALCIUM TRIHYDRATE) [Concomitant]

REACTIONS (14)
  - Multi-organ failure [None]
  - Toxicity to various agents [None]
  - Lactic acidosis [None]
  - Nausea [None]
  - Vomiting [None]
  - Metabolic acidosis [None]
  - Renal failure acute [None]
  - Atrial fibrillation [None]
  - Blood bilirubin increased [None]
  - Overdose [None]
  - Condition aggravated [None]
  - Drug level increased [None]
  - Abdominal pain [None]
  - Blood glucose increased [None]
